FAERS Safety Report 6690134-3 (Version None)
Quarter: 2010Q2

REPORT INFORMATION
  Report Type: 
  Country: None (occurrence: None)
  Receive Date: 20100421
  Receipt Date: 20100417
  Transmission Date: 20101027
  Serious: Yes (Death)
  Sender: FDA-Public Use
  Company Number: PHHY2010MX24424

PATIENT

DRUGS (1)
  1. FEMARA [Suspect]
     Indication: NEOPLASM MALIGNANT
     Dosage: 2.5 MG, QD
     Route: 048

REACTIONS (1)
  - NEOPLASM MALIGNANT [None]
